FAERS Safety Report 11252361 (Version 1)
Quarter: 2015Q3

REPORT INFORMATION
  Report Type: Spontaneous
  Country: US (occurrence: US)
  Receive Date: 20150708
  Receipt Date: 20150708
  Transmission Date: 20151125
  Serious: No
  Sender: FDA-Public Use
  Company Number: US-ELI_LILLY_AND_COMPANY-US201403001649

PATIENT
  Age: 73 Year
  Sex: Female

DRUGS (5)
  1. TYLENOL [Concomitant]
     Active Substance: ACETAMINOPHEN
  2. GEMZAR [Suspect]
     Active Substance: GEMCITABINE HYDROCHLORIDE
     Indication: GALLBLADDER ADENOCARCINOMA
     Route: 065
  3. VICODIN [Concomitant]
     Active Substance: ACETAMINOPHEN\HYDROCODONE BITARTRATE
  4. ONDANSETRON [Concomitant]
     Active Substance: ONDANSETRON
  5. AMLODIPINE [Concomitant]
     Active Substance: AMLODIPINE BESYLATE

REACTIONS (10)
  - Nausea [Unknown]
  - Influenza like illness [Unknown]
  - Blood pressure decreased [Unknown]
  - Asthenia [Unknown]
  - Abdominal discomfort [Unknown]
  - Rash [Recovering/Resolving]
  - Abdominal pain [Unknown]
  - Decreased appetite [Unknown]
  - Blood pressure increased [Unknown]
  - Blood count abnormal [Unknown]
